FAERS Safety Report 12156252 (Version 1)
Quarter: 2016Q1

REPORT INFORMATION
  Report Type: Spontaneous
  Country: ZA (occurrence: ZA)
  Receive Date: 20160307
  Receipt Date: 20160307
  Transmission Date: 20160526
  Serious: Yes (Other)
  Sender: FDA-Public Use
  Company Number: ZA-MYLANLABS-2016M1009272

PATIENT

DRUGS (1)
  1. TENOFOVIR DF/LAMIVUDINE/EFAVIRENZ TABLETS 300/300/600MG [Suspect]
     Active Substance: EFAVIRENZ\LAMIVUDINE\TENOFOVIR
     Indication: ANTIRETROVIRAL THERAPY
     Dosage: UNK
     Route: 048
     Dates: start: 2010

REACTIONS (8)
  - Blood creatine phosphokinase increased [Unknown]
  - Vomiting [Unknown]
  - Diarrhoea [Unknown]
  - CD4 lymphocytes abnormal [Unknown]
  - Viral load [Unknown]
  - Weight decreased [Unknown]
  - Decreased appetite [Unknown]
  - Nausea [Unknown]
